FAERS Safety Report 5303426-7 (Version None)
Quarter: 2007Q2

REPORT INFORMATION
  Report Type: 
  Country: None (occurrence: None)
  Receive Date: 20070420
  Receipt Date: 20070413
  Transmission Date: 20071010
  Serious: Yes (Hospitalization)
  Sender: FDA-Public Use
  Company Number: FR-BRISTOL-MYERS SQUIBB COMPANY-13752993

PATIENT
  Age: 60 Year
  Sex: Male

DRUGS (6)
  1. ERBITUX [Suspect]
     Indication: OROPHARYNGEAL CANCER STAGE UNSPECIFIED
     Route: 042
     Dates: start: 20070302, end: 20070302
  2. AUGMENTIN '125' [Suspect]
     Route: 042
     Dates: start: 20070306, end: 20070312
  3. ACTRAPID HM [Suspect]
     Indication: DIABETES MELLITUS
     Route: 058
     Dates: start: 20060915
  4. ESIDRIX [Suspect]
     Route: 048
  5. CORDARONE [Suspect]
     Route: 048
  6. OGAST [Suspect]
     Route: 048

REACTIONS (1)
  - THROMBOCYTOPENIA [None]
